FAERS Safety Report 12335918 (Version 1)
Quarter: 2016Q2

REPORT INFORMATION
  Report Type: Spontaneous
  Country: CA (occurrence: CA)
  Receive Date: 20160505
  Receipt Date: 20160505
  Transmission Date: 20160815
  Serious: Yes (Other)
  Sender: FDA-Public Use
  Company Number: CA-TEVA-656724USA

PATIENT
  Age: 62 Year
  Sex: Male

DRUGS (10)
  1. ACTEMRA [Suspect]
     Active Substance: TOCILIZUMAB
     Dosage: 38.0952 MILLIGRAM DAILY;
     Route: 042
  2. ROSUVASTATIN CALCIUM. [Concomitant]
     Active Substance: ROSUVASTATIN CALCIUM
  3. DICLOFENAC [Suspect]
     Active Substance: DICLOFENAC
     Indication: PRODUCT USED FOR UNKNOWN INDICATION
     Dosage: REGIMEN 1
     Route: 065
  4. ACTEMRA [Suspect]
     Active Substance: TOCILIZUMAB
     Dosage: 28.5714 MILLIGRAM DAILY;
     Route: 042
  5. RAMIPRIL. [Concomitant]
     Active Substance: RAMIPRIL
  6. ACTEMRA [Suspect]
     Active Substance: TOCILIZUMAB
     Indication: RHEUMATOID ARTHRITIS
     Dosage: 1 DF ONCE IN 4 WEEKS. REG !
     Route: 042
  7. HYDROMORPHONE [Concomitant]
     Active Substance: HYDROMORPHONE
  8. METHOTREXATE [Suspect]
     Active Substance: METHOTREXATE
     Indication: PRODUCT USED FOR UNKNOWN INDICATION
     Dosage: 1.4286 MILLIGRAM DAILY; REGIMEN 1
  9. INSULIN LISPRO PROTAMINE [Concomitant]
     Active Substance: INSULIN LISPRO
  10. INSULIN [Concomitant]
     Active Substance: INSULIN NOS

REACTIONS (15)
  - Poor venous access [Unknown]
  - Tremor [Unknown]
  - Vomiting [Unknown]
  - Pain in extremity [Unknown]
  - Peripheral swelling [Unknown]
  - Pruritus [Unknown]
  - Pharyngitis [Unknown]
  - Drug ineffective [Unknown]
  - Musculoskeletal stiffness [Unknown]
  - Therapeutic response decreased [Unknown]
  - Arthralgia [Unknown]
  - Gait disturbance [Unknown]
  - Hepatic enzyme increased [Unknown]
  - Oedema peripheral [Unknown]
  - Swelling [Unknown]
